FAERS Safety Report 5571354-8 (Version None)
Quarter: 2007Q4

REPORT INFORMATION
  Report Type: 
  Country: None (occurrence: None)
  Receive Date: 20071221
  Receipt Date: 20070813
  Transmission Date: 20080405
  Serious: No
  Sender: FDA-Public Use
  Company Number: A0669783A

PATIENT
  Sex: Female

DRUGS (6)
  1. FLONASE [Suspect]
     Dosage: 2SPR TWICE PER DAY
     Route: 045
     Dates: start: 20060101
  2. FLOVENT [Suspect]
     Indication: DRUG USE FOR UNKNOWN INDICATION
     Dosage: 2SPR TWICE PER DAY
     Route: 055
     Dates: start: 20010101
  3. SEREVENT [Suspect]
     Indication: MULTIPLE ALLERGIES
     Route: 055
     Dates: start: 20020101
  4. SPIRIVA [Concomitant]
  5. PREDNISONE [Concomitant]
  6. ANTIBIOTICS [Concomitant]

REACTIONS (1)
  - CANDIDIASIS [None]
